FAERS Safety Report 4517077-5 (Version None)
Quarter: 2004Q4

REPORT INFORMATION
  Report Type: 
  Country: None (occurrence: None)
  Receive Date: 20041130
  Receipt Date: 20041117
  Transmission Date: 20050328
  Serious: Yes (Hospitalization)
  Sender: FDA-Public Use
  Company Number: 2004038978

PATIENT
  Age: 1 Day
  Sex: Male
  Weight: 1.09 kg

DRUGS (5)
  1. ZOLOFT [Suspect]
     Indication: ILL-DEFINED DISORDER
  2. FLUOXETINE [Suspect]
     Indication: ILL-DEFINED DISORDER
  3. ALPRAZOLAM [Concomitant]
  4. ZOLPIDEM TARTRATE [Concomitant]
  5. BENZYLPENICILLIN SODIUM (BENZYLPENICILLIN SODIUM) [Concomitant]

REACTIONS (12)
  - BODY TEMPERATURE DECREASED [None]
  - BRADYCARDIA NEONATAL [None]
  - CEREBRAL HAEMORRHAGE NEONATAL [None]
  - CEREBRAL VENTRICLE DILATATION [None]
  - CYANOSIS NEONATAL [None]
  - DRUG EXPOSURE DURING PREGNANCY [None]
  - FOETAL DISORDER [None]
  - NEONATAL DISORDER [None]
  - NEONATAL RESPIRATORY DISTRESS SYNDROME [None]
  - PREMATURE BABY [None]
  - UNWANTED PREGNANCY [None]
  - VERTICAL INFECTION TRANSMISSION [None]
